FAERS Safety Report 10452265 (Version 1)
Quarter: 2014Q3

REPORT INFORMATION
  Report Type: Spontaneous
  Country: US (occurrence: None)
  Receive Date: 20140912
  Receipt Date: 20140912
  Transmission Date: 20150326
  Serious: Yes (Other)
  Sender: FDA-Public Use
  Company Number: None

PATIENT
  Age: 69 Year
  Sex: Male
  Weight: 80.9 kg

DRUGS (3)
  1. BENICAR [Suspect]
     Active Substance: OLMESARTAN MEDOXOMIL
     Indication: HYPERTENSION
     Route: 048
  2. ATORVASTATIN [Concomitant]
     Active Substance: ATORVASTATIN
  3. ASA [Concomitant]
     Active Substance: ASPIRIN

REACTIONS (6)
  - Decreased appetite [None]
  - Weight decreased [None]
  - Gait disturbance [None]
  - Muscle atrophy [None]
  - Neuropathy peripheral [None]
  - Diarrhoea [None]

NARRATIVE: CASE EVENT DATE: 20140205
